FAERS Safety Report 15770397 (Version 1)
Quarter: 2018Q4

REPORT INFORMATION
  Report Type: Spontaneous
  Country: US (occurrence: US)
  Receive Date: 20181218
  Receipt Date: 20181218
  Transmission Date: 20190205
  Serious: No
  Sender: FDA-Public Use
  Company Number: None

PATIENT
  Sex: Male

DRUGS (2)
  1. ALPRAZOLAM. [Suspect]
     Active Substance: ALPRAZOLAM
  2. TRAMADOL. [Suspect]
     Active Substance: TRAMADOL

REACTIONS (8)
  - Wrong product administered [None]
  - Muscle spasms [None]
  - Myalgia [None]
  - Nervousness [None]
  - Insomnia [None]
  - Drug withdrawal syndrome [None]
  - Agitation [None]
  - Product dispensing error [None]

NARRATIVE: CASE EVENT DATE: 2018
